FAERS Safety Report 5368986-9 (Version None)
Quarter: 2007Q2

REPORT INFORMATION
  Report Type: 
  Country: None (occurrence: None)
  Receive Date: 20070625
  Receipt Date: 20061121
  Transmission Date: 20071010
  Serious: No
  Sender: FDA-Public Use
  Company Number: US-ASTRAZENECA-2006UW25800

PATIENT
  Age: 41 Year
  Sex: Female
  Weight: 72.6 kg

DRUGS (2)
  1. CRESTOR [Suspect]
     Indication: BLOOD CHOLESTEROL
     Route: 048
     Dates: start: 20061114
  2. LEVOTHYROXINE SODIUM [Concomitant]

REACTIONS (1)
  - FUNGAL INFECTION [None]
